FAERS Safety Report 11344101 (Version 1)
Quarter: 2015Q3

REPORT INFORMATION
  Report Type: Spontaneous
  Country: RO (occurrence: RO)
  Receive Date: 20150806
  Receipt Date: 20150806
  Transmission Date: 20151125
  Serious: Yes (Death, Other)
  Sender: FDA-Public Use
  Company Number: RO-ACTAVIS-2015-16140

PATIENT
  Age: 71 Year
  Sex: Female

DRUGS (7)
  1. FLUDARABINE [Suspect]
     Active Substance: FLUDARABINE PHOSPHATE
     Indication: CHRONIC LYMPHOCYTIC LEUKAEMIA
     Dosage: UNK UNK, CYCLICAL
     Route: 065
     Dates: start: 200604
  2. LAMIVUDINE (UNKNOWN) [Suspect]
     Active Substance: LAMIVUDINE
     Indication: HEPATITIS B
     Dosage: UNK
     Route: 065
     Dates: start: 2013
  3. FLUDARABINE [Suspect]
     Active Substance: FLUDARABINE PHOSPHATE
     Dosage: UNK, CYCLICAL
     Route: 065
     Dates: start: 200706, end: 200810
  4. ALEMTUZUMAB [Suspect]
     Active Substance: ALEMTUZUMAB
     Indication: CHRONIC LYMPHOCYTIC LEUKAEMIA
     Dosage: UNK
     Route: 065
     Dates: start: 201201
  5. CYCLOPHOSPHAMIDE (UNKNOWN) [Suspect]
     Active Substance: CYCLOPHOSPHAMIDE
     Indication: CHRONIC LYMPHOCYTIC LEUKAEMIA
     Dosage: UNK, CYCLICAL
     Route: 065
     Dates: start: 200604
  6. CHLORAMBUCIL [Suspect]
     Active Substance: CHLORAMBUCIL
     Indication: CHRONIC LYMPHOCYTIC LEUKAEMIA
     Dosage: UNK
     Route: 065
     Dates: start: 2006
  7. CYCLOPHOSPHAMIDE (UNKNOWN) [Suspect]
     Active Substance: CYCLOPHOSPHAMIDE
     Dosage: UNK, CYCLICAL
     Route: 065
     Dates: start: 200706, end: 200810

REACTIONS (7)
  - Sepsis [Fatal]
  - Tracheobronchitis [Unknown]
  - Acute lymphocytic leukaemia [Not Recovered/Not Resolved]
  - Pneumocystis jirovecii pneumonia [Unknown]
  - Pancytopenia [Not Recovered/Not Resolved]
  - Pneumonia [Not Recovered/Not Resolved]
  - Hepatitis B [Recovered/Resolved]

NARRATIVE: CASE EVENT DATE: 2013
